FAERS Safety Report 22155563 (Version 1)
Quarter: 2023Q1

REPORT INFORMATION
  Report Type: Report from Study
  Country: US (occurrence: US)
  Receive Date: 20230330
  Receipt Date: 20230330
  Transmission Date: 20230418
  Serious: Yes (Other)
  Sender: FDA-Public Use
  Company Number: US-ABBVIE-4709514

PATIENT
  Age: 79 Year
  Sex: Male
  Weight: 132 kg

DRUGS (1)
  1. VENCLEXTA [Suspect]
     Active Substance: VENETOCLAX
     Indication: Chronic lymphocytic leukaemia
     Dosage: 400 MILLIGRAM?FORM STRENGTH: 100 MG?DURATION TEXT: IN THE MORNING
     Route: 048
     Dates: start: 2021

REACTIONS (4)
  - Ear neoplasm malignant [Recovered/Resolved]
  - Shoulder arthroplasty [Unknown]
  - Sciatic nerve neuropathy [Unknown]
  - Cervical radiculopathy [Not Recovered/Not Resolved]

NARRATIVE: CASE EVENT DATE: 20220901
